FAERS Safety Report 5034088-4 (Version None)
Quarter: 2006Q2

REPORT INFORMATION
  Report Type: 
  Country: None (occurrence: None)
  Receive Date: 20060518
  Receipt Date: 20050603
  Transmission Date: 20061013
  Serious: No
  Sender: FDA-Public Use
  Company Number: 2005075610

PATIENT
  Age: 68 Year
  Sex: Female

DRUGS (3)
  1. PROVERA [Suspect]
     Indication: ILL-DEFINED DISORDER
  2. NICORETTE [Suspect]
     Indication: SMOKING CESSATION THERAPY
     Dosage: 2 MG, OTHER
  3. PREMARIN [Suspect]
     Indication: ILL-DEFINED DISORDER

REACTIONS (3)
  - DRUG ABUSER [None]
  - MOUTH ULCERATION [None]
  - VAGINAL HAEMORRHAGE [None]
